FAERS Safety Report 15526140 (Version 6)
Quarter: 2020Q1

REPORT INFORMATION
  Report Type: Spontaneous
  Country: US (occurrence: US)
  Receive Date: 20181018
  Receipt Date: 20200320
  Transmission Date: 20200409
  Serious: Yes (Death, Hospitalization, Other)
  Sender: FDA-Public Use
  Company Number: US-PURDUE-USA-2018-0145011

PATIENT
  Age: 30 Year
  Sex: Female

DRUGS (2)
  1. HEROIN [Suspect]
     Active Substance: DIAMORPHINE
     Indication: DRUG ABUSE
     Dosage: UNK
     Route: 065
     Dates: start: 2006
  2. OXYCONTIN [Suspect]
     Active Substance: OXYCODONE HYDROCHLORIDE
     Indication: PRODUCT USED FOR UNKNOWN INDICATION
     Dosage: UNK
     Route: 048
     Dates: start: 2004

REACTIONS (17)
  - Acute respiratory failure [Unknown]
  - Feeling abnormal [Unknown]
  - Drug use disorder [Unknown]
  - Victim of sexual abuse [Unknown]
  - Pain [Unknown]
  - Substance abuse [Not Recovered/Not Resolved]
  - Endocarditis [Fatal]
  - Loss of consciousness [Not Recovered/Not Resolved]
  - Chest discomfort [Unknown]
  - Staphylococcal sepsis [Unknown]
  - Pulmonary embolism [Unknown]
  - Pulmonary mass [Unknown]
  - Hepatitis C [Unknown]
  - Suicide attempt [Unknown]
  - Lethargy [Unknown]
  - Drug dependence [Not Recovered/Not Resolved]
  - Peripheral swelling [Unknown]

NARRATIVE: CASE EVENT DATE: 2004
